FAERS Safety Report 7830031-0 (Version None)
Quarter: 2011Q4

REPORT INFORMATION
  Report Type: 
  Country: None (occurrence: None)
  Receive Date: 20111018
  Receipt Date: 20111005
  Transmission Date: 20120403
  Serious: Yes (Other)
  Sender: FDA-Public Use
  Company Number: 1064824

PATIENT
  Age: 47 Year
  Sex: Male
  Weight: 130.9 kg

DRUGS (3)
  1. CYCLOPHOSPHAMIDE [Suspect]
     Indication: CHRONIC LYMPHOCYTIC LEUKAEMIA
     Dosage: 600 MG/M2 (1506 MG TOTAL DOSE), DAY 1 OF WEEKS 1,5,9.,14,17,21
     Dates: start: 20110804, end: 20110804
  2. NIPENT [Suspect]
     Indication: CHRONIC LYMPHOCYTIC LEUKAEMIA
     Dosage: 4 MG/M2 (10 MG TOTAL DOSE) ON WEEKS 1,5,9,13,17,21
     Dates: start: 20110804, end: 20110804
  3. RITUXAN [Suspect]
     Indication: CHRONIC LYMPHOCYTIC LEUKAEMIA
     Dosage: 375 MG.M2 (941 MG TOTAL DOSE), ON WEEKS 1,5,9,13,17,21; WEEK 1,3 DAYS/WEEK; WEEKS 5-21; 1 DAY/WEEK
     Dates: start: 20110804, end: 20110804

REACTIONS (1)
  - LYMPHOPENIA [None]
